FAERS Safety Report 4597926-5 (Version None)
Quarter: 2005Q1

REPORT INFORMATION
  Report Type: 
  Country: None (occurrence: None)
  Receive Date: 20050301
  Receipt Date: 20050223
  Transmission Date: 20050727
  Serious: Yes (Death)
  Sender: FDA-Public Use
  Company Number: 2005-BP-02828RO

PATIENT
  Age: 38 Year
  Sex: Female

DRUGS (1)
  1. METHADONE HCL [Suspect]

REACTIONS (1)
  - DEATH [None]
